FAERS Safety Report 9429460 (Version 1)
Quarter: 2013Q3

REPORT INFORMATION
  Report Type: Spontaneous
  Country: US (occurrence: US)
  Receive Date: 20130730
  Receipt Date: 20130730
  Transmission Date: 20140515
  Serious: No
  Sender: FDA-Public Use
  Company Number: US-ABBOTT-13P-163-1061229-00

PATIENT
  Age: 53 Year
  Sex: Male
  Weight: 63.56 kg

DRUGS (3)
  1. NIASPAN (COATED) [Suspect]
     Indication: BLOOD TRIGLYCERIDES INCREASED
     Dates: start: 201202
  2. CRESTOR [Concomitant]
     Indication: BLOOD CHOLESTEROL INCREASED
  3. ASPIRIN [Concomitant]
     Indication: ADJUVANT THERAPY
     Dates: start: 201202

REACTIONS (2)
  - Flushing [Not Recovered/Not Resolved]
  - Blood triglycerides increased [Not Recovered/Not Resolved]
